FAERS Safety Report 8055694-9 (Version None)
Quarter: 2011Q4

REPORT INFORMATION
  Report Type: 
  Country: None (occurrence: None)
  Receive Date: 20111219
  Receipt Date: 20110311
  Transmission Date: 20120403
  Serious: Yes (Disabling)
  Sender: FDA-Public Use
  Company Number: WAES 1103USA01921

PATIENT
  Age: 53 Year
  Sex: Female
  Weight: 127.9144 kg

DRUGS (1)
  1. JANUVIA [Suspect]
     Indication: DIABETES MELLITUS
     Dosage: 100 MG/DAILY/PO
     Route: 048
     Dates: start: 20100728, end: 20110128

REACTIONS (1)
  - PANCREATITIS [None]
